FAERS Safety Report 4973518-0 (Version None)
Quarter: 2006Q2

REPORT INFORMATION
  Report Type: 
  Country: None (occurrence: None)
  Receive Date: 20060407
  Receipt Date: 20060403
  Transmission Date: 20061013
  Serious: Yes (Other)
  Sender: FDA-Public Use
  Company Number: 007092

PATIENT
  Sex: Female

DRUGS (6)
  1. MEDROXYPROGESTERONE ACETATE [Suspect]
     Dosage: ORAL
     Route: 048
     Dates: start: 19970124
  2. ESTRACE [Suspect]
     Dosage: ORAL
     Route: 048
     Dates: start: 19940901
  3. CYCRIN [Suspect]
     Dosage: ORAL
     Route: 048
     Dates: start: 19940901
  4. PREMARIN [Suspect]
     Dosage: ORAL
     Route: 048
     Dates: start: 19970101
  5. PROVERA [Suspect]
     Dosage: ORAL
     Route: 048
     Dates: start: 19970124
  6. PREMPRO [Suspect]
     Dosage: ORAL
     Route: 048
     Dates: start: 19970221

REACTIONS (1)
  - BREAST CANCER FEMALE [None]
